FAERS Safety Report 4829571-8 (Version None)
Quarter: 2005Q4

REPORT INFORMATION
  Report Type: 
  Country: None (occurrence: None)
  Receive Date: 20051116
  Receipt Date: 20051103
  Transmission Date: 20060501
  Serious: Yes (Death)
  Sender: FDA-Public Use
  Company Number: FR-AMGEN-UK156718

PATIENT
  Age: 57 Year
  Sex: Male
  Weight: 63 kg

DRUGS (7)
  1. NEULASTA [Suspect]
     Indication: DRUG USE FOR UNKNOWN INDICATION
     Route: 058
     Dates: start: 20050910, end: 20050910
  2. ALIMTA [Suspect]
     Route: 042
     Dates: start: 20050909, end: 20050909
  3. CISPLATIN [Concomitant]
     Route: 065
     Dates: start: 20050616
  4. GEMZAR [Concomitant]
     Route: 065
     Dates: start: 20050616
  5. TAXOL [Concomitant]
     Route: 065
     Dates: start: 20050803
  6. NEORECORMON [Concomitant]
     Route: 065
     Dates: start: 20050803
  7. GRANOCYTE [Concomitant]
     Route: 065
     Dates: start: 20050630

REACTIONS (1)
  - FEBRILE NEUTROPENIA [None]
